FAERS Safety Report 7626235-2 (Version None)
Quarter: 2011Q3

REPORT INFORMATION
  Report Type: 
  Country: None (occurrence: None)
  Receive Date: 20110721
  Receipt Date: 20110718
  Transmission Date: 20111222
  Serious: Yes (Hospitalization, Other)
  Sender: FDA-Public Use
  Company Number: US-PFIZER INC-001-0073-990326

PATIENT
  Sex: Male
  Weight: 76.2 kg

DRUGS (27)
  1. DILANTIN [Interacting]
     Dosage: 500 MG, DAILY
     Route: 048
  2. MULTI-VITAMINS [Concomitant]
     Dosage: UNK
  3. TYLENOL-500 [Concomitant]
     Dosage: UNK
  4. ALBUTEROL SULFATE AUTOHALER [Concomitant]
     Dosage: UNK
  5. LORATADINE [Concomitant]
     Dosage: UNK
  6. DEPAKOTE [Interacting]
     Dosage: THREE TABLETS OF 500MG DAILY
     Route: 048
     Dates: start: 20110701
  7. PHENYTOIN [Suspect]
     Indication: CONVULSION
     Dosage: UNK
  8. ZYRTEC [Suspect]
     Indication: URTICARIA
  9. ZYRTEC [Concomitant]
     Indication: FOOD ALLERGY
     Dosage: 10 MG, DAILY
  10. DILANTIN [Interacting]
     Indication: CONVULSION
     Dosage: TWO CAPSULES OF 100MG IN THE MORNING, ONE AT 06.30PM AND TWO AT 10.30PM
     Route: 048
  11. DILANTIN [Interacting]
     Dosage: 200 MG, 2X/DAY
     Route: 048
     Dates: start: 19890101
  12. ZYRTEC [Suspect]
     Indication: MULTIPLE ALLERGIES
     Dosage: 10 MG/DAY
     Route: 048
     Dates: start: 20000601
  13. ALCOHOL [Suspect]
     Dosage: UNK
     Route: 048
  14. VITAMIN E [Concomitant]
     Dosage: UNK
  15. DEPAKOTE [Concomitant]
     Dosage: 1250 MG, UNK
  16. ZYRTEC [Suspect]
     Indication: RASH
  17. DEPAKOTE [Interacting]
     Dosage: 500 MG, 2X/DAY
     Route: 048
  18. BEE VENOM, STANDARD [Concomitant]
     Dosage: UNK
  19. BENADRYL [Concomitant]
     Dosage: UNK
  20. DEPAKOTE [Interacting]
     Dosage: THREE TABLETS OF 500MG AND THEN TWO TABLETS OF 500MG EVERY ALTERNATE DAY
     Route: 048
  21. DEPAKOTE [Interacting]
     Dosage: 500 MG, 3X/DAY
     Route: 048
  22. ALKA-SELTZER PLUS [Concomitant]
     Dosage: UNK
     Route: 065
  23. DOXYCYCLINE [Concomitant]
     Indication: EYE INFECTION
     Dosage: 0.4 MG, DAILY
  24. CALCIUM WITH VITAMIN D [Interacting]
     Dosage: UNK
  25. DEPAKOTE [Interacting]
     Indication: CONVULSION
     Dosage: 500 MG, 2X/DAY
     Dates: start: 20060201
  26. ACETYLSALICYLIC ACID SRT [Concomitant]
     Dosage: UNK
  27. CENTRUM SILVER [Concomitant]
     Dosage: UNK

REACTIONS (36)
  - BALANCE DISORDER [None]
  - ANGIOEDEMA [None]
  - GRAND MAL CONVULSION [None]
  - DRUG INTERACTION [None]
  - MUSCULOSKELETAL STIFFNESS [None]
  - BLOOD GLUCOSE DECREASED [None]
  - AURA [None]
  - MULTIPLE ALLERGIES [None]
  - VERTIGO [None]
  - ANTICONVULSANT DRUG LEVEL ABOVE THERAPEUTIC [None]
  - NODULE [None]
  - URTICARIA [None]
  - HERNIA OBSTRUCTIVE [None]
  - CONVULSION [None]
  - SYNCOPE [None]
  - CARDIAC PACEMAKER REPLACEMENT [None]
  - IMMUNOSUPPRESSION [None]
  - DYSPHAGIA [None]
  - HYPERSENSITIVITY [None]
  - CIRCUMSTANCE OR INFORMATION CAPABLE OF LEADING TO MEDICATION ERROR [None]
  - DIZZINESS [None]
  - VOMITING [None]
  - NASOPHARYNGITIS [None]
  - DRUG LEVEL DECREASED [None]
  - HYPOGLYCAEMIA [None]
  - DRUG LEVEL BELOW THERAPEUTIC [None]
  - ANTICONVULSANT DRUG LEVEL BELOW THERAPEUTIC [None]
  - EYE MOVEMENT DISORDER [None]
  - INCOHERENT [None]
  - PYREXIA [None]
  - LIVER FUNCTION TEST ABNORMAL [None]
  - LOSS OF CONSCIOUSNESS [None]
  - ROAD TRAFFIC ACCIDENT [None]
  - RASH [None]
  - INFLUENZA LIKE ILLNESS [None]
  - FEELING ABNORMAL [None]
